FAERS Safety Report 6328589-6 (Version None)
Quarter: 2009Q3

REPORT INFORMATION
  Report Type: 
  Country: None (occurrence: None)
  Receive Date: 20090824
  Receipt Date: 20090824
  Transmission Date: 20100115
  Serious: No
  Sender: FDA-Public Use
  Company Number: None

PATIENT
  Age: 69 Year
  Sex: Male

DRUGS (1)
  1. PIOGLITAZONE [Suspect]
     Indication: DIABETES MELLITUS
     Dosage: 30 MG EVERY DAY PO
     Route: 048
     Dates: start: 20090702, end: 20090824

REACTIONS (2)
  - DYSPNOEA EXERTIONAL [None]
  - OEDEMA PERIPHERAL [None]
